FAERS Safety Report 20368952 (Version 1)
Quarter: 2022Q1

REPORT INFORMATION
  Report Type: Spontaneous
  Country: US (occurrence: None)
  Receive Date: 20220122
  Receipt Date: 20220122
  Transmission Date: 20220423
  Serious: Yes (Hospitalization)
  Sender: FDA-Public Use
  Company Number: None

PATIENT
  Age: 5 Year
  Sex: Female
  Weight: 30.3 kg

DRUGS (14)
  1. REMDESIVIR [Suspect]
     Active Substance: REMDESIVIR
     Indication: COVID-19
     Dosage: OTHER FREQUENCY : ONCE/ LOADING DOSE;?
     Route: 042
     Dates: start: 20220105, end: 20220105
  2. REMDESIVIR [Suspect]
     Active Substance: REMDESIVIR
     Indication: COVID-19
     Dosage: FREQUENCY : DAILY;?
     Route: 042
     Dates: start: 20220106, end: 20220108
  3. CEFTRIAXONE [Concomitant]
     Active Substance: CEFTRIAXONE
     Dates: start: 20220105, end: 20220106
  4. Lidocaine 1% Injectable [Concomitant]
     Dates: start: 20220105, end: 20220110
  5. KEPPRA [Concomitant]
     Active Substance: LEVETIRACETAM
     Dates: start: 20220105, end: 20220110
  6. KEPPRA [Concomitant]
     Active Substance: LEVETIRACETAM
     Dates: start: 20220113, end: 20220114
  7. PEPCID [Concomitant]
     Active Substance: FAMOTIDINE
     Dates: start: 20220105, end: 20220110
  8. DDAVP [Concomitant]
     Active Substance: DESMOPRESSIN ACETATE
     Dates: start: 20220106, end: 20220110
  9. HYDROCORTISONE [Concomitant]
     Active Substance: HYDROCORTISONE
     Dates: start: 20220105, end: 20220110
  10. Ns for Bolus [Concomitant]
     Dates: start: 20220105, end: 20220105
  11. Ns for Bolus [Concomitant]
     Dates: start: 20220112, end: 20220112
  12. Albuterol 0.5% Inhalation Solution [Concomitant]
     Dates: start: 20220105, end: 20220109
  13. Albuterol HFA MDI [Concomitant]
     Dates: start: 20220109, end: 20220110
  14. Phenylephrine nasal 0.125% drops [Concomitant]
     Dates: start: 20220105, end: 20220109

REACTIONS (3)
  - Confusional state [None]
  - Blood sodium increased [None]
  - Blood urea increased [None]

NARRATIVE: CASE EVENT DATE: 20220113
